FAERS Safety Report 9541355 (Version 1)
Quarter: 2013Q2

REPORT INFORMATION
  Report Type: Spontaneous
  Country: US (occurrence: None)
  Receive Date: 20130524
  Receipt Date: 20130524
  Transmission Date: 20140414
  Serious: Yes (Other)
  Sender: FDA-Public Use
  Company Number: PHEH2013US003300

PATIENT
  Age: 54 Year
  Sex: Female

DRUGS (6)
  1. GILENYA [Suspect]
     Indication: MULTIPLE SCLEROSIS
     Route: 048
     Dates: start: 20120621, end: 20130116
  2. PRILOSEC [Concomitant]
  3. OXYBUTYN (OXYBUTYNIN HYDROCHLORIDE) [Concomitant]
  4. ORACEA (DOXYCYCLINE) [Concomitant]
  5. ALLEGRA [Concomitant]
  6. MULTIVIT (VITAMINS NOS) [Concomitant]

REACTIONS (4)
  - Balance disorder [None]
  - Nausea [None]
  - Malaise [None]
  - Blood pressure increased [None]
